FAERS Safety Report 6722220-3 (Version None)
Quarter: 2010Q2

REPORT INFORMATION
  Report Type: 
  Country: None (occurrence: None)
  Receive Date: 20100512
  Receipt Date: 20100428
  Transmission Date: 20101027
  Serious: Yes (Hospitalization, Other)
  Sender: FDA-Public Use
  Company Number: US-ELI_LILLY_AND_COMPANY-US201004008646

PATIENT
  Sex: Female

DRUGS (6)
  1. PROZAC [Suspect]
     Indication: DEPRESSION
     Dosage: 40 MG, 2/D
     Dates: start: 19800101
  2. PROZAC [Suspect]
     Dosage: 20 MG, 2/D
  3. POTASSIUM CHLORIDE [Concomitant]
  4. LASIX [Concomitant]
  5. DARVOCET-N 100 [Concomitant]
  6. OMEPRAZOLE [Concomitant]

REACTIONS (9)
  - ARTHRALGIA [None]
  - COLLAPSE OF LUNG [None]
  - DYSPNOEA [None]
  - KNEE ARTHROPLASTY [None]
  - MYALGIA [None]
  - OXYGEN SATURATION DECREASED [None]
  - PARAESTHESIA [None]
  - PRURITUS [None]
  - URTICARIA [None]
